FAERS Safety Report 4832622-8 (Version None)
Quarter: 2005Q4

REPORT INFORMATION
  Report Type: 
  Country: None (occurrence: None)
  Receive Date: 20051121
  Receipt Date: 20051110
  Transmission Date: 20060501
  Serious: Yes (Hospitalization)
  Sender: FDA-Public Use
  Company Number: DE-JNJFOC-20051005205

PATIENT
  Sex: Female
  Weight: 105 kg

DRUGS (8)
  1. INFLIXIMAB [Suspect]
     Indication: CROHN'S DISEASE
  2. IMUREK [Concomitant]
     Indication: CROHN'S DISEASE
     Route: 065
  3. ENTERCORT [Concomitant]
     Indication: CROHN'S DISEASE
     Route: 065
  4. DECORTIN [Concomitant]
     Indication: CROHN'S DISEASE
     Route: 065
  5. PANTOZOL [Concomitant]
     Route: 065
  6. BELOC ZOK [Concomitant]
     Route: 065
  7. DOSS [Concomitant]
     Route: 065
  8. DOSS [Concomitant]
     Route: 065

REACTIONS (1)
  - SQUAMOUS CELL CARCINOMA [None]
